FAERS Safety Report 15233737 (Version 3)
Quarter: 2018Q4

REPORT INFORMATION
  Report Type: Report from Study
  Country: FR (occurrence: FR)
  Receive Date: 20180802
  Receipt Date: 20181127
  Transmission Date: 20190204
  Serious: Yes (Hospitalization)
  Sender: FDA-Public Use
  Company Number: FR-GILEAD-2018-0348450

PATIENT
  Age: 66 Year
  Sex: Male
  Weight: 84 kg

DRUGS (9)
  1. IDELALISIB [Suspect]
     Active Substance: IDELALISIB
     Indication: B-CELL LYMPHOMA
     Dosage: 100 MG, BID
     Route: 048
     Dates: start: 20180411, end: 20180605
  2. LOVENOX [Concomitant]
     Active Substance: ENOXAPARIN SODIUM
     Indication: PROPHYLAXIS
     Route: 058
     Dates: start: 20180628, end: 20180711
  3. BACTRIM [Concomitant]
     Active Substance: SULFAMETHOXAZOLE\TRIMETHOPRIM
     Indication: ANTIFUNGAL PROPHYLAXIS
     Route: 048
     Dates: start: 20180411
  4. CITALOPRAM [Concomitant]
     Active Substance: CITALOPRAM HYDROBROMIDE
     Indication: ANXIETY
     Route: 048
     Dates: start: 2017
  5. TARDYFERON [Concomitant]
     Active Substance: FERROUS SULFATE
     Indication: PROPHYLAXIS
     Route: 048
     Dates: start: 2017
  6. DAFALGAN CODEINE [Concomitant]
     Active Substance: ACETAMINOPHEN\CODEINE PHOSPHATE
     Indication: ANKYLOSING SPONDYLITIS
     Dosage: UNK
     Route: 048
     Dates: start: 2016
  7. EUPANTOL [Concomitant]
     Active Substance: PANTOPRAZOLE SODIUM
     Indication: GASTRITIS
     Route: 048
     Dates: start: 2017
  8. ZELITREX [Concomitant]
     Active Substance: VALACYCLOVIR HYDROCHLORIDE
     Indication: ANTIVIRAL PROPHYLAXIS
     Route: 048
     Dates: start: 20180411
  9. DAFALGAN CODEINE [Concomitant]
     Active Substance: ACETAMINOPHEN\CODEINE PHOSPHATE
     Dosage: UNK
     Route: 048
     Dates: start: 2015

REACTIONS (1)
  - Lung disorder [Recovering/Resolving]

NARRATIVE: CASE EVENT DATE: 20180628
